FAERS Safety Report 4690443-3 (Version None)
Quarter: 2005Q2

REPORT INFORMATION
  Report Type: 
  Country: None (occurrence: None)
  Receive Date: 20050615
  Receipt Date: 20050606
  Transmission Date: 20051028
  Serious: Yes (Hospitalization)
  Sender: FDA-Public Use
  Company Number: 200515193GDDC

PATIENT
  Age: 74 Year
  Sex: Male

DRUGS (2)
  1. DOCETAXEL [Suspect]
     Indication: LUNG NEOPLASM MALIGNANT
     Dosage: DOSE: (DAY 1, 8 AND 15) 35
     Route: 042
  2. DEXAMETHASONE [Suspect]
     Indication: LUNG NEOPLASM MALIGNANT
     Dosage: DOSE: (DAY 1, 8 AND 15) 8
     Route: 042

REACTIONS (6)
  - ASTHENIA [None]
  - DEHYDRATION [None]
  - DYSPNOEA EXERTIONAL [None]
  - FALL [None]
  - LUNG NEOPLASM MALIGNANT [None]
  - MALIGNANT NEOPLASM PROGRESSION [None]
